FAERS Safety Report 5043053-2 (Version None)
Quarter: 2006Q3

REPORT INFORMATION
  Report Type: 
  Country: None (occurrence: None)
  Receive Date: 20060705
  Receipt Date: 20060622
  Transmission Date: 20061208
  Serious: Yes (Hospitalization, Other)
  Sender: FDA-Public Use
  Company Number: 2006178

PATIENT
  Age: 63 Year
  Sex: Female

DRUGS (1)
  1. VAGIFEM [Suspect]
     Indication: ATROPHIC VULVOVAGINITIS
     Dosage: 2 TABL./ WEEK
     Route: 067
     Dates: start: 20040101, end: 20050101

REACTIONS (1)
  - ENDOMETRIAL CANCER [None]
